FAERS Safety Report 9365130 (Version 1)
Quarter: 2013Q2

REPORT INFORMATION
  Report Type: Spontaneous
  Country: GB (occurrence: GB)
  Receive Date: 20130624
  Receipt Date: 20130624
  Transmission Date: 20140414
  Serious: Yes (Hospitalization)
  Sender: FDA-Public Use
  Company Number: PHHY2013GB062205

PATIENT
  Age: 85 Year
  Sex: Male

DRUGS (8)
  1. ATORVASTATIN [Suspect]
     Dosage: 80 MG, UNK
     Route: 048
     Dates: end: 20130531
  2. WARFARIN [Concomitant]
  3. ASPIRIN [Concomitant]
  4. CLOPIDOGREL [Concomitant]
  5. ISOSORBIDE MONONITRATE [Concomitant]
  6. DUTASTERIDE [Concomitant]
  7. ALLOPURINOL [Concomitant]
  8. FOLIC ACID [Concomitant]

REACTIONS (5)
  - Renal impairment [Unknown]
  - Hyperkalaemia [Unknown]
  - Glomerular filtration rate abnormal [Unknown]
  - Blood creatine phosphokinase increased [Unknown]
  - Rhabdomyolysis [Recovering/Resolving]
